FAERS Safety Report 7577812-9 (Version None)
Quarter: 2011Q2

REPORT INFORMATION
  Report Type: 
  Country: None (occurrence: None)
  Receive Date: 20110628
  Receipt Date: 20110615
  Transmission Date: 20111010
  Serious: Yes (Other)
  Sender: FDA-Public Use
  Company Number: PHHY2011US48602

PATIENT
  Sex: Male

DRUGS (3)
  1. SANDOSTATIN LAR [Suspect]
     Indication: METASTATIC CARCINOID TUMOUR
     Dosage: 30 MG EVERY 28 DAYS
     Route: 042
     Dates: start: 20041109
  2. SANDOSTATIN LAR [Suspect]
     Dosage: 30 MG, EVERY 14 DAYS
     Dates: start: 20050308
  3. SANDOSTATIN LAR [Suspect]
     Dosage: 30 MG, WEEKLY
     Dates: start: 20051018

REACTIONS (3)
  - LOSS OF CONSCIOUSNESS [None]
  - LOWER LIMB FRACTURE [None]
  - FLUSHING [None]
